FAERS Safety Report 7055511-X (Version None)
Quarter: 2010Q4

REPORT INFORMATION
  Report Type: 
  Country: None (occurrence: None)
  Receive Date: 20101019
  Receipt Date: 20101019
  Transmission Date: 20110411
  Serious: No
  Sender: FDA-Public Use
  Company Number: None

PATIENT
  Sex: Female

DRUGS (3)
  1. TACROLIMUS [Suspect]
     Indication: TRANSPLANT
     Dosage: 2MG TWICE DAILY PO
     Route: 048
     Dates: start: 20100524, end: 20101014
  2. MYFORTIC [Suspect]
     Indication: TRANSPLANT
     Dosage: 360MG 4 TIMES DAILY PO
     Route: 048
     Dates: start: 20100524, end: 20101014
  3. PROGRAF [Suspect]

REACTIONS (1)
  - GINGIVAL BLEEDING [None]
